FAERS Safety Report 7846739-7 (Version None)
Quarter: 2011Q4

REPORT INFORMATION
  Report Type: 
  Country: None (occurrence: None)
  Receive Date: 20111025
  Receipt Date: 20111019
  Transmission Date: 20120403
  Serious: Yes (Hospitalization)
  Sender: FDA-Public Use
  Company Number: PHHY2011DE93020

PATIENT
  Sex: Female
  Weight: 70 kg

DRUGS (3)
  1. TAMOXIFEN CITRATE [Concomitant]
     Indication: CANCER HORMONAL THERAPY
     Dosage: 40 MG, PER DAY
     Route: 048
     Dates: start: 20110510
  2. IBUPROFEN [Concomitant]
     Indication: PAIN
     Dosage: 1200 MG, PER DAY
     Route: 048
     Dates: start: 20111017
  3. ZOMETA [Suspect]
     Indication: BONE DISORDER
     Route: 042
     Dates: start: 20110318

REACTIONS (1)
  - OSTEONECROSIS OF JAW [None]
